FAERS Safety Report 10308267 (Version 1)
Quarter: 2014Q3

REPORT INFORMATION
  Report Type: Spontaneous
  Country: PL (occurrence: PL)
  Receive Date: 20140716
  Receipt Date: 20140716
  Transmission Date: 20150326
  Serious: Yes (Life-Threatening, Hospitalization)
  Sender: FDA-Public Use
  Company Number: PL-WATSON-2014-15100

PATIENT
  Age: 56 Year
  Sex: Female
  Weight: 53 kg

DRUGS (3)
  1. FLUOROURACIL. [Suspect]
     Active Substance: FLUOROURACIL
     Indication: COLON CANCER
     Dosage: 900 MG, DAILY
     Route: 042
     Dates: start: 20140303, end: 20140310
  2. DOXORUBICIN (UNKNOWN) [Suspect]
     Active Substance: DOXORUBICIN
     Indication: COLON CANCER
     Dosage: 45 MG, DAILY
     Route: 042
     Dates: start: 20140303, end: 20140310
  3. MITOMYCIN C [Suspect]
     Active Substance: MITOMYCIN
     Indication: COLON CANCER
     Dosage: 10 MG, DAILY
     Route: 042
     Dates: start: 20140303, end: 20140310

REACTIONS (2)
  - Neutropenia [Recovering/Resolving]
  - Febrile neutropenia [Recovered/Resolved]

NARRATIVE: CASE EVENT DATE: 20140315
